FAERS Safety Report 9030903 (Version 3)
Quarter: 2014Q1

REPORT INFORMATION
  Report Type: Report from Study
  Country: US (occurrence: US)
  Receive Date: 20130123
  Receipt Date: 20140110
  Transmission Date: 20141002
  Serious: Yes (Death, Hospitalization)
  Sender: FDA-Public Use
  Company Number: US-BRISTOL-MYERS SQUIBB COMPANY-17250424

PATIENT
  Age: 61 Year
  Sex: Male
  Weight: 61.24 kg

DRUGS (19)
  1. CETUXIMAB [Suspect]
     Indication: HEAD AND NECK CANCER METASTATIC
     Dosage: MOST RECENT DOSE:24DEC12?17DC-17DC12 732MG?24DC-24DC12 458MG
     Route: 042
     Dates: start: 20121217, end: 20121224
  2. CISPLATIN [Suspect]
     Indication: HEAD AND NECK CANCER METASTATIC
     Dosage: RECENT DOSE:24DEC12?10DC-10DC12
     Route: 042
     Dates: start: 20121210, end: 20121210
  3. BIOSYN [Suspect]
     Indication: HEAD AND NECK CANCER METASTATIC
     Dosage: RECENT DOSE:24DEC12?TILL 13DC12?ONE INF 96 HR
     Route: 042
     Dates: start: 20121210, end: 20121213
  4. NORMAL SALINE [Concomitant]
  5. MAGNESIUM [Concomitant]
  6. FENTANYL CITRATE [Concomitant]
     Dates: start: 20121204, end: 20130103
  7. OXYCODONE HCL + ACETAMINOPHEN [Concomitant]
     Dates: start: 20121217, end: 20121227
  8. DIPHENHYDRAMINE [Concomitant]
     Dates: start: 20121217, end: 20121224
  9. ENOXAPARIN [Concomitant]
     Dates: start: 20121224, end: 20130102
  10. METHYLPREDNISONE [Concomitant]
     Dates: start: 20121231, end: 20130103
  11. INSULIN LISPRO [Concomitant]
     Dates: start: 20121214, end: 20121224
  12. INSULIN NPH [Concomitant]
     Dates: start: 20121226, end: 20130101
  13. INSULIN ASPART [Concomitant]
     Dates: start: 20121225, end: 20130102
  14. MORPHINE [Concomitant]
     Dates: start: 20121231, end: 20130105
  15. LISINOPRIL [Concomitant]
     Dates: start: 20121114, end: 20121224
  16. AMLODIPINE [Concomitant]
     Dates: start: 20121114, end: 20121224
  17. METOPROLOL [Concomitant]
     Dates: start: 20121114, end: 20121224
  18. APREPITANT [Concomitant]
     Dates: start: 20121210, end: 20121211
  19. POTASSIUM CHLORIDE [Concomitant]
     Dates: start: 20121217

REACTIONS (2)
  - Sepsis [Fatal]
  - Pneumonia [Not Recovered/Not Resolved]
